FAERS Safety Report 4771585-0 (Version None)
Quarter: 2005Q3

REPORT INFORMATION
  Report Type: 
  Country: None (occurrence: None)
  Receive Date: 20050913
  Receipt Date: 20050913
  Transmission Date: 20060218
  Serious: Yes (Hospitalization, Other)
  Sender: FDA-Public Use
  Company Number: None

PATIENT
  Sex: Male
  Weight: 70 kg

DRUGS (1)
  1. CISPLATIN [Suspect]
     Indication: NASAL SINUS CANCER
     Dosage: SEE IMAGE
     Route: 042
     Dates: start: 20041117, end: 20041117

REACTIONS (8)
  - DYSPHAGIA [None]
  - HYPOTENSION [None]
  - MUCOSAL INFLAMMATION [None]
  - ODYNOPHAGIA [None]
  - OESOPHAGITIS [None]
  - PAIN [None]
  - TOOTH DISORDER [None]
  - WHEEZING [None]
